FAERS Safety Report 7112440-0 (Version None)
Quarter: 2010Q4

REPORT INFORMATION
  Report Type: 
  Country: None (occurrence: None)
  Receive Date: 20101119
  Receipt Date: 20101110
  Transmission Date: 20110411
  Serious: Yes (Other)
  Sender: FDA-Public Use
  Company Number: CA-JNJFOC-20101102097

PATIENT
  Sex: Male
  Weight: 83 kg

DRUGS (4)
  1. REMICADE [Suspect]
     Indication: CROHN'S DISEASE
     Route: 042
  2. BENADRYL [Concomitant]
     Route: 048
  3. TYLENOL (CAPLET) [Concomitant]
  4. SOLU-CORTEF [Concomitant]
     Route: 042

REACTIONS (7)
  - BACK PAIN [None]
  - CHILLS [None]
  - CROHN'S DISEASE [None]
  - FISTULA [None]
  - HAEMORRHAGE [None]
  - NIGHT SWEATS [None]
  - PYREXIA [None]
